FAERS Safety Report 15168513 (Version 2)
Quarter: 2018Q4

REPORT INFORMATION
  Report Type: Report from Study
  Country: US (occurrence: US)
  Receive Date: 20180719
  Receipt Date: 20181017
  Transmission Date: 20190204
  Serious: No
  Sender: FDA-Public Use
  Company Number: US-AMGEN-USASL2018033209

PATIENT
  Age: 75 Year
  Sex: Male
  Weight: 92.63 kg

DRUGS (3)
  1. REPATHA [Suspect]
     Active Substance: EVOLOCUMAB
     Dosage: UNK
     Route: 065
  2. FLUOXETINE [Concomitant]
     Active Substance: FLUOXETINE HYDROCHLORIDE
     Indication: DEPRESSION
     Dosage: UNK
  3. REPATHA [Suspect]
     Active Substance: EVOLOCUMAB
     Indication: HYPERCHOLESTEROLAEMIA
     Dosage: 140 MG, Q2WK
     Route: 065
     Dates: start: 20151205

REACTIONS (9)
  - Rhinorrhoea [Not Recovered/Not Resolved]
  - Sluggishness [Recovered/Resolved]
  - Influenza like illness [Unknown]
  - Injection site bruising [Unknown]
  - Asthenia [Unknown]
  - Blood glucose increased [Unknown]
  - Fatigue [Unknown]
  - Back pain [Unknown]
  - Spinal pain [Unknown]

NARRATIVE: CASE EVENT DATE: 2017
